FAERS Safety Report 14310796 (Version 2)
Quarter: 2018Q1

REPORT INFORMATION
  Report Type: Spontaneous
  Country: SE (occurrence: SE)
  Receive Date: 20171220
  Receipt Date: 20180102
  Transmission Date: 20180509
  Serious: Yes (Death)
  Sender: FDA-Public Use
  Company Number: SE-B.I. PHARMACEUTICALS,INC./RIDGEFIELD-2017-BI-067466

PATIENT
  Age: 63 Year
  Sex: Male

DRUGS (3)
  1. PEM [Concomitant]
     Indication: LUNG NEOPLASM
     Route: 065
  2. TAXOTERE [Concomitant]
     Active Substance: DOCETAXEL
     Indication: PRODUCT USED FOR UNKNOWN INDICATION
     Route: 065
     Dates: start: 20171206
  3. VARGATEF [Suspect]
     Active Substance: NINTEDANIB
     Indication: NEOPLASM MALIGNANT
     Route: 065
     Dates: start: 20171207, end: 20171211

REACTIONS (6)
  - White blood cell count abnormal [Fatal]
  - Leukopenia [Fatal]
  - Diarrhoea [Fatal]
  - Abdominal pain [Fatal]
  - Sepsis [Fatal]
  - Colitis [Fatal]

NARRATIVE: CASE EVENT DATE: 20171211
